FAERS Safety Report 4920283-9 (Version None)
Quarter: 2006Q1

REPORT INFORMATION
  Report Type: 
  Country: None (occurrence: None)
  Receive Date: 20060223
  Receipt Date: 20060201
  Transmission Date: 20060701
  Serious: Yes (Hospitalization)
  Sender: FDA-Public Use
  Company Number: JP-JPN-A200600444

PATIENT
  Age: 72 Year
  Sex: Male
  Weight: 63 kg

DRUGS (3)
  1. VALTREX [Suspect]
     Indication: HERPES ZOSTER
     Dosage: 1000MG THREE TIMES PER DAY
     Route: 048
     Dates: start: 20060112, end: 20060116
  2. GASTER [Concomitant]
     Indication: GASTRIC ULCER
     Dosage: 40MG PER DAY
     Route: 048
     Dates: end: 20060116
  3. PREDNISOLONE [Concomitant]
     Route: 065

REACTIONS (3)
  - DIABETIC NEPHROPATHY [None]
  - NEPHROSCLEROSIS [None]
  - RENAL FAILURE ACUTE [None]
